FAERS Safety Report 8881661 (Version 1)
Quarter: 2012Q4

REPORT INFORMATION
  Report Type: 
  Country: US (occurrence: US)
  Receive Date: 20121101
  Receipt Date: 20121101
  Transmission Date: 20130627
  Serious: Yes (Hospitalization)
  Sender: FDA-Public Use
  Company Number: US-VALEANT-2012VX004852

PATIENT
  Age: 85 Year
  Sex: Male

DRUGS (1)
  1. SYPRINE [Suspect]
     Indication: DRUG USE FOR UNKNOWN INDICATION
     Route: 065
     Dates: start: 20121015, end: 20121018

REACTIONS (3)
  - Gallbladder disorder [Unknown]
  - Dysarthria [Unknown]
  - Limb discomfort [Unknown]
